FAERS Safety Report 24593651 (Version 1)
Quarter: 2024Q4

REPORT INFORMATION
  Report Type: Spontaneous
  Country: US (occurrence: None)
  Receive Date: 20241108
  Receipt Date: 20241108
  Transmission Date: 20250114
  Serious: Yes (Other)
  Sender: Public
  Company Number: None

PATIENT
  Age: 42 Year
  Sex: Female
  Weight: 103.5 kg

DRUGS (1)
  1. GAMMAGARD [Suspect]
     Active Substance: HUMAN IMMUNOGLOBULIN G
     Route: 042
     Dates: start: 20241022, end: 20241024

REACTIONS (4)
  - Headache [None]
  - Pain [None]
  - Infusion related reaction [None]
  - Inadequate analgesia [None]

NARRATIVE: CASE EVENT DATE: 20241024
